FAERS Safety Report 24775959 (Version 1)
Quarter: 2024Q4

REPORT INFORMATION
  Report Type: Spontaneous
  Country: BR (occurrence: BR)
  Receive Date: 20241226
  Receipt Date: 20241226
  Transmission Date: 20250115
  Serious: Yes (Other)
  Sender: SANDOZ
  Company Number: BR-002147023-NVSC2024BR105395

PATIENT
  Age: 60 Year
  Sex: Female
  Weight: 68 kg

DRUGS (7)
  1. ANASTROZOLE [Suspect]
     Active Substance: ANASTROZOLE
     Indication: Breast cancer
     Dosage: 1 DOSAGE FORM, QD
     Route: 065
     Dates: end: 20241218
  2. KISQALI [Suspect]
     Active Substance: RIBOCICLIB
     Indication: Breast cancer
     Dosage: 3 DOSAGE FORM (63 COATED TABLETS) (3 TABLETS PER DAY FOR 21 DAYS, AND PAUSE OF 7 DAYS)
     Route: 048
     Dates: start: 202401, end: 20241218
  3. KISQALI [Suspect]
     Active Substance: RIBOCICLIB
     Indication: Hepatic cancer
  4. KISQALI [Suspect]
     Active Substance: RIBOCICLIB
     Indication: Lung neoplasm malignant
  5. ANASTROZOLE [Concomitant]
     Active Substance: ANASTROZOLE
     Indication: Breast cancer
     Dosage: 1 MG, QD
     Route: 048
     Dates: start: 202401
  6. ANASTROZOLE [Concomitant]
     Active Substance: ANASTROZOLE
     Indication: Hepatic cancer
  7. ANASTROZOLE [Concomitant]
     Active Substance: ANASTROZOLE
     Indication: Lung neoplasm malignant

REACTIONS (4)
  - Metastases to chest wall [Unknown]
  - Pulmonary mass [Unknown]
  - Musculoskeletal chest pain [Unknown]
  - Product dose omission issue [Unknown]

NARRATIVE: CASE EVENT DATE: 20240512
